FAERS Safety Report 5498046-8 (Version None)
Quarter: 2007Q4

REPORT INFORMATION
  Report Type: 
  Country: None (occurrence: None)
  Receive Date: 20071025
  Receipt Date: 20071015
  Transmission Date: 20080405
  Serious: Yes (Death)
  Sender: FDA-Public Use
  Company Number: ES-PFIZER INC-2007085842

PATIENT
  Age: 77 Year
  Sex: Male

DRUGS (10)
  1. SUTENT [Suspect]
     Indication: GASTROINTESTINAL STROMAL TUMOUR
     Dates: start: 20070611, end: 20070702
  2. SINTROM [Interacting]
     Indication: ATRIAL FIBRILLATION
     Route: 048
  3. TAZOCEL [Concomitant]
     Route: 048
     Dates: start: 20070627, end: 20070629
  4. MASDIL [Concomitant]
     Route: 048
  5. TARDYFERON [Concomitant]
     Route: 048
  6. DIGOXIN [Concomitant]
     Route: 048
  7. AMOXICILLIN [Concomitant]
  8. CLAVULANIC ACID [Concomitant]
  9. CIPROFLOXACIN [Concomitant]
  10. OMEPRAZOLE [Concomitant]

REACTIONS (4)
  - ASPIRATION [None]
  - CEREBRAL HAEMORRHAGE [None]
  - DRUG INTERACTION [None]
  - THROMBOCYTOPENIA [None]
